FAERS Safety Report 25518217 (Version 2)
Quarter: 2025Q3

REPORT INFORMATION
  Report Type: Report from Study
  Country: EU (occurrence: EU)
  Receive Date: 20250704
  Receipt Date: 20250729
  Transmission Date: 20251020
  Serious: Yes (Hospitalization)
  Sender: JOHNSON AND JOHNSON
  Company Number: EU-JNJFOC-20250636293

PATIENT
  Age: 84 Year
  Sex: Male
  Weight: 69.9 kg

DRUGS (3)
  1. TECLISTAMAB [Suspect]
     Active Substance: TECLISTAMAB
     Indication: Plasma cell myeloma
     Dates: start: 20240801
  2. TECLISTAMAB [Suspect]
     Active Substance: TECLISTAMAB
     Dates: start: 20240803
  3. TECLISTAMAB [Suspect]
     Active Substance: TECLISTAMAB
     Dates: start: 20240805

REACTIONS (1)
  - Malaise [Recovered/Resolved]

NARRATIVE: CASE EVENT DATE: 20240911
